FAERS Safety Report 11713817 (Version 1)
Quarter: 2015Q4

REPORT INFORMATION
  Report Type: Spontaneous
  Country: US (occurrence: None)
  Receive Date: 20151106
  Receipt Date: 20151106
  Transmission Date: 20160304
  Serious: No
  Sender: FDA-Public Use
  Company Number: None

PATIENT
  Age: 34 Year
  Sex: Female
  Weight: 63.5 kg

DRUGS (3)
  1. NOVOLOG INSULIN [Concomitant]
  2. FARXIGA [Suspect]
     Active Substance: DAPAGLIFLOZIN PROPANEDIOL
     Indication: DIABETES MELLITUS
     Dosage: TAKING BY MOUTH
     Dates: start: 20151101, end: 20151102
  3. VITAMIN D [Concomitant]
     Active Substance: CHOLECALCIFEROL

REACTIONS (9)
  - Night sweats [None]
  - Urine ketone body present [None]
  - Nausea [None]
  - Blood glucose increased [None]
  - Vomiting [None]
  - Feeding disorder [None]
  - Chills [None]
  - Dizziness [None]
  - Fluid intake reduced [None]

NARRATIVE: CASE EVENT DATE: 20151101
